FAERS Safety Report 21571664 (Version 1)
Quarter: 2022Q4

REPORT INFORMATION
  Report Type: Spontaneous
  Country: US (occurrence: None)
  Receive Date: 20221107
  Receipt Date: 20221107
  Transmission Date: 20230113
  Serious: Yes (Hospitalization)
  Sender: FDA-Public Use
  Company Number: None

PATIENT
  Age: 61 Year
  Sex: Male
  Weight: 139.71 kg

DRUGS (1)
  1. METOPROLOL [Suspect]
     Active Substance: METOPROLOL
     Dosage: FREQUENCY : DAILY;?
     Route: 048
     Dates: start: 20220612, end: 20220614

REACTIONS (9)
  - Anaphylactic shock [None]
  - Hypersensitivity [None]
  - Nausea [None]
  - Vomiting [None]
  - Diarrhoea [None]
  - Rash macular [None]
  - Dysphonia [None]
  - Swollen tongue [None]
  - Obstructive airways disorder [None]

NARRATIVE: CASE EVENT DATE: 20220614
